FAERS Safety Report 8366618-9 (Version None)
Quarter: 2012Q2

REPORT INFORMATION
  Report Type: 
  Country: None (occurrence: None)
  Receive Date: 20120516
  Receipt Date: 20120516
  Transmission Date: 20120825
  Serious: No
  Sender: FDA-Public Use
  Company Number: None

PATIENT
  Sex: Female
  Weight: 124.7392 kg

DRUGS (4)
  1. QUETIAPINE [Suspect]
     Dosage: 50 MG AT BEDTIME PO
     Route: 048
     Dates: start: 20120420, end: 20120425
  2. LAMICTAL [Concomitant]
  3. LISINOPRIL [Concomitant]
  4. SEROQUEL [Suspect]
     Indication: BIPOLAR II DISORDER
     Dosage: 100MG AT BEDTIME PO
     Route: 048
     Dates: start: 20120309, end: 20120501

REACTIONS (2)
  - DYSKINESIA [None]
  - PRODUCT QUALITY ISSUE [None]
